FAERS Safety Report 7509226-1 (Version None)
Quarter: 2011Q2

REPORT INFORMATION
  Report Type: 
  Country: None (occurrence: None)
  Receive Date: 20110527
  Receipt Date: 20110510
  Transmission Date: 20111010
  Serious: No
  Sender: FDA-Public Use
  Company Number: US-B.I. PHARMACEUTICALS,INC./RIDGEFIELD-2011-BP-03053BP

PATIENT
  Sex: Male
  Weight: 102.51 kg

DRUGS (13)
  1. SPIRIVA [Suspect]
     Indication: DYSPNOEA
     Dosage: 18 MCG
     Route: 055
     Dates: start: 20101201, end: 20110113
  2. VYTORIN [Concomitant]
  3. FUROSEMIDE [Concomitant]
     Dosage: 40 MG
  4. WARFARIN SODIUM [Concomitant]
     Dosage: 10 MG
  5. EMUSIP [Concomitant]
  6. ATENOLOL [Concomitant]
     Dosage: 25 MG
  7. LASIX [Concomitant]
     Dosage: 40 MG
  8. AMLODIPINE [Concomitant]
     Dosage: 5 MG
  9. KLOR-CON M20 [Concomitant]
     Dosage: 20 MEQ
  10. DUREZOL [Concomitant]
  11. OMEPRAZOLE [Concomitant]
     Dosage: 20 MG
  12. TEMAZEPAM [Concomitant]
     Dosage: 15 MG
  13. FOLIC ADID [Concomitant]
     Dosage: 400 MCG

REACTIONS (11)
  - EYE DISORDER [None]
  - CATARACT OPERATION [None]
  - WHEEZING [None]
  - UNEVALUABLE EVENT [None]
  - OCULAR HYPERAEMIA [None]
  - HEART RATE INCREASED [None]
  - DYSPNOEA [None]
  - BLOOD PRESSURE INCREASED [None]
  - DRY MOUTH [None]
  - INFLAMMATION [None]
  - SLEEP APNOEA SYNDROME [None]
